FAERS Safety Report 16135003 (Version 1)
Quarter: 2019Q1

REPORT INFORMATION
  Report Type: Spontaneous
  Country: TW (occurrence: TW)
  Receive Date: 20190329
  Receipt Date: 20190329
  Transmission Date: 20190418
  Serious: Yes (Death)
  Sender: FDA-Public Use
  Company Number: TW-ASTRAZENECA-2019SE49245

PATIENT
  Age: 65 Year
  Sex: Male

DRUGS (1)
  1. IMFINZI [Suspect]
     Active Substance: DURVALUMAB
     Route: 042
     Dates: start: 20190130, end: 20190130

REACTIONS (4)
  - Pneumonia [Fatal]
  - Pneumonia [None]
  - Pulmonary haemorrhage [Fatal]
  - Lung infection [None]

NARRATIVE: CASE EVENT DATE: 20190217
